FAERS Safety Report 7642921-2 (Version None)
Quarter: 2011Q3

REPORT INFORMATION
  Report Type: 
  Country: None (occurrence: None)
  Receive Date: 20110728
  Receipt Date: 20110722
  Transmission Date: 20111222
  Serious: Yes (Other)
  Sender: FDA-Public Use
  Company Number: PHHY2011CA61828

PATIENT
  Sex: Female

DRUGS (4)
  1. RELPAX [Concomitant]
  2. CALTRATE +D [Concomitant]
  3. ZOLEDRONOC ACID [Suspect]
     Indication: OSTEOPOROSIS
     Dosage: 5 MG, UNK
     Route: 042
     Dates: start: 20090728
  4. CLONAZEPAM [Concomitant]

REACTIONS (2)
  - GINGIVAL PAIN [None]
  - GINGIVAL DISORDER [None]
